FAERS Safety Report 8884775 (Version 2)
Quarter: 2012Q4

REPORT INFORMATION
  Report Type: 
  Country: NL (occurrence: NL)
  Receive Date: 20121102
  Receipt Date: 20121126
  Transmission Date: 20130627
  Serious: Yes (Other)
  Sender: FDA-Public Use
  Company Number: NL-PFIZER INC-2012274069

PATIENT
  Sex: Female

DRUGS (2)
  1. LYRICA [Suspect]
     Indication: POLYNEUROPATHY
     Dosage: 25 mg, UNK
  2. LYRICA [Suspect]
     Dosage: 50 mg, UNK
     Dates: start: 20121026, end: 20121028

REACTIONS (2)
  - Swelling face [Recovered/Resolved]
  - Skin discolouration [Recovered/Resolved]
